FAERS Safety Report 8488632-5 (Version None)
Quarter: 2012Q3

REPORT INFORMATION
  Report Type: 
  Country: None (occurrence: None)
  Receive Date: 20120705
  Receipt Date: 20120622
  Transmission Date: 20120928
  Serious: Yes (Other)
  Sender: FDA-Public Use
  Company Number: JP-UCBSA-060679

PATIENT
  Age: 54 Year
  Sex: Female

DRUGS (1)
  1. XYZAL [Suspect]
     Route: 048
     Dates: start: 20110501, end: 20110501

REACTIONS (1)
  - DRUG-INDUCED LIVER INJURY [None]
